FAERS Safety Report 9984541 (Version 1)
Quarter: 2014Q1

REPORT INFORMATION
  Report Type: Report from Study
  Country: US (occurrence: US)
  Receive Date: 20140307
  Receipt Date: 20140307
  Transmission Date: 20141002
  Serious: Yes (Other)
  Sender: FDA-Public Use
  Company Number: US-JNJFOC-20140300369

PATIENT
  Age: 68 Year
  Sex: Male
  Weight: 79.38 kg

DRUGS (3)
  1. REMICADE [Suspect]
     Indication: ANKYLOSING SPONDYLITIS
     Dosage: EVERY 4 OR 5 WEEKS INTIATED INFLIXIMAB 7 YEARS AGO
     Route: 042
     Dates: start: 2007
  2. REMICADE [Suspect]
     Indication: RHEUMATOID ARTHRITIS
     Dosage: EVERY 4 OR 5 WEEKS INTIATED INFLIXIMAB 7 YEARS AGO
     Route: 042
     Dates: start: 2007
  3. METHOTREXATE [Concomitant]
     Indication: RHEUMATOID ARTHRITIS
     Route: 048

REACTIONS (2)
  - Aortic aneurysm [Recovered/Resolved]
  - Colon cancer [Not Recovered/Not Resolved]
